FAERS Safety Report 20183722 (Version 1)
Quarter: 2021Q4

REPORT INFORMATION
  Report Type: Spontaneous
  Country: SE (occurrence: SE)
  Receive Date: 20211214
  Receipt Date: 20211214
  Transmission Date: 20220303
  Serious: Yes (Hospitalization)
  Sender: FDA-Public Use
  Company Number: SE-NOVARTISPH-NVSC2021SE284517

PATIENT
  Age: 3 Year
  Sex: Male

DRUGS (4)
  1. TOPOTECAN HYDROCHLORIDE [Suspect]
     Active Substance: TOPOTECAN HYDROCHLORIDE
     Indication: Neuroblastoma
     Dosage: 0.42 MG, QD (DAILY)
     Route: 042
     Dates: start: 20211115, end: 20211119
  2. CYCLOPHOSPHAMIDE [Suspect]
     Active Substance: CYCLOPHOSPHAMIDE
     Indication: Neuroblastoma
     Dosage: 140 MG, QD (DAILY)
     Route: 042
     Dates: start: 20211115, end: 20211119
  3. LORLATINIB [Suspect]
     Active Substance: LORLATINIB
     Indication: Neuroblastoma recurrent
     Dosage: 55 MG, QD (ONCE DAILY)
     Route: 048
     Dates: start: 20211118
  4. LORLATINIB [Suspect]
     Active Substance: LORLATINIB
     Dosage: UNK
     Route: 065
     Dates: end: 20211123

REACTIONS (1)
  - Febrile neutropenia [Not Recovered/Not Resolved]

NARRATIVE: CASE EVENT DATE: 20211122
